FAERS Safety Report 6206576-6 (Version None)
Quarter: 2009Q2

REPORT INFORMATION
  Report Type: 
  Country: None (occurrence: None)
  Receive Date: 20090528
  Receipt Date: 20090526
  Transmission Date: 20091009
  Serious: Yes (Other)
  Sender: FDA-Public Use
  Company Number: ZA-JNJFOC-20090505677

PATIENT
  Sex: Female

DRUGS (4)
  1. LEVOFLOXACIN WINTHORP [Suspect]
     Indication: DRUG USE FOR UNKNOWN INDICATION
     Route: 048
  2. ALTOSEC [Suspect]
     Indication: DRUG USE FOR UNKNOWN INDICATION
     Route: 048
  3. SIMVASTATIN [Concomitant]
     Route: 048
  4. ZETOMAX [Concomitant]
     Route: 048

REACTIONS (1)
  - ANGINA PECTORIS [None]
